FAERS Safety Report 7540794-X (Version None)
Quarter: 2011Q2

REPORT INFORMATION
  Report Type: 
  Country: None (occurrence: None)
  Receive Date: 20110610
  Receipt Date: 20110601
  Transmission Date: 20111010
  Serious: Yes (Death)
  Sender: FDA-Public Use
  Company Number: GB-ROCHE-780362

PATIENT
  Sex: Male

DRUGS (3)
  1. XELODA [Suspect]
     Route: 065
  2. OXALIPLATIN [Suspect]
     Route: 065
  3. AVASTIN [Suspect]
     Route: 065

REACTIONS (1)
  - DEATH [None]
